FAERS Safety Report 7291129-1 (Version None)
Quarter: 2011Q1

REPORT INFORMATION
  Report Type: 
  Country: None (occurrence: None)
  Receive Date: 20110214
  Receipt Date: 20110210
  Transmission Date: 20110831
  Serious: Yes (Other)
  Sender: FDA-Public Use
  Company Number: US-PFIZER INC-2011030935

PATIENT
  Sex: Female
  Weight: 77.6 kg

DRUGS (4)
  1. CHANTIX [Suspect]
     Dosage: UNK
     Route: 048
     Dates: start: 20090501
  2. CHANTIX [Suspect]
     Indication: SMOKING CESSATION THERAPY
     Dosage: 0.5 MG, DAILY
     Route: 048
     Dates: start: 20080201
  3. CHANTIX [Suspect]
     Dosage: UNK
     Route: 048
     Dates: start: 20100218, end: 20100303
  4. SEROQUEL [Suspect]
     Indication: BIPOLAR DISORDER
     Dosage: 400 MG, UNK
     Route: 048
     Dates: start: 20100101

REACTIONS (10)
  - HOMICIDAL IDEATION [None]
  - GLYCOSYLATED HAEMOGLOBIN INCREASED [None]
  - POST-TRAUMATIC STRESS DISORDER [None]
  - WEIGHT INCREASED [None]
  - PARANOIA [None]
  - BIPOLAR DISORDER [None]
  - SUICIDAL IDEATION [None]
  - SOCIAL PHOBIA [None]
  - FAECALOMA [None]
  - LIPIDS INCREASED [None]
